FAERS Safety Report 15990654 (Version 1)
Quarter: 2019Q1

REPORT INFORMATION
  Report Type: Spontaneous
  Country: US (occurrence: US)
  Receive Date: 20190221
  Receipt Date: 20190221
  Transmission Date: 20190418
  Serious: Yes (Other)
  Sender: FDA-Public Use
  Company Number: US-PURDUE-USA-2019-0146065

PATIENT
  Age: 44 Year
  Sex: Male
  Weight: 106.58 kg

DRUGS (1)
  1. OXYCODONE HYDROCHLORIDE. [Suspect]
     Active Substance: OXYCODONE HYDROCHLORIDE
     Indication: PAIN
     Dosage: 2-3 X 15 MG, EVERY 5-6 H
     Route: 048
     Dates: start: 20190210, end: 20190217

REACTIONS (8)
  - Loss of personal independence in daily activities [Recovered/Resolved]
  - Drug hypersensitivity [Recovered/Resolved]
  - Bedridden [Recovered/Resolved]
  - Hypokinesia [Recovered/Resolved]
  - Malaise [Recovered/Resolved]
  - Nausea [Recovered/Resolved]
  - Drug ineffective [Unknown]
  - Unevaluable event [Recovered/Resolved]

NARRATIVE: CASE EVENT DATE: 201902
